FAERS Safety Report 22022263 (Version 7)
Quarter: 2023Q4

REPORT INFORMATION
  Report Type: Report from Study
  Country: US (occurrence: US)
  Receive Date: 20230222
  Receipt Date: 20231115
  Transmission Date: 20240109
  Serious: No
  Sender: FDA-Public Use
  Company Number: US-002147023-NVSC2023US040946

PATIENT
  Sex: Female

DRUGS (1)
  1. COSENTYX [Suspect]
     Active Substance: SECUKINUMAB
     Indication: Product used for unknown indication
     Dosage: 150 MG, QMO (VIAL)
     Route: 065

REACTIONS (7)
  - Pain [Unknown]
  - Malaise [Unknown]
  - Joint swelling [Unknown]
  - Product use issue [Unknown]
  - Gait disturbance [Unknown]
  - Condition aggravated [Unknown]
  - Blister [Unknown]
